FAERS Safety Report 8809238 (Version 1)
Quarter: 2012Q4

REPORT INFORMATION
  Report Type: Spontaneous
  Country: US (occurrence: None)
  Receive Date: 20120921
  Receipt Date: 20120921
  Transmission Date: 20130627
  Serious: Yes (Hospitalization)
  Sender: FDA-Public Use
  Company Number: None

PATIENT
  Age: 77 Year
  Sex: Male

DRUGS (1)
  1. ENOXAPARIN [Suspect]
     Indication: AORTIC VALVE REPLACEMENT
     Dosage: 100 MG BID SQ
     Route: 058
     Dates: start: 20120525, end: 20120529

REACTIONS (2)
  - Intra-abdominal haematoma [None]
  - Haemoglobin decreased [None]
